FAERS Safety Report 4963281-1 (Version None)
Quarter: 2006Q2

REPORT INFORMATION
  Report Type: 
  Country: None (occurrence: None)
  Receive Date: 20060405
  Receipt Date: 20060325
  Transmission Date: 20061013
  Serious: Yes (Life-Threatening, Other)
  Sender: FDA-Public Use
  Company Number: EG-MERCK-0603USA04000

PATIENT
  Age: 65 Year
  Sex: Male
  Weight: 90 kg

DRUGS (3)
  1. PRIMAXIN [Suspect]
     Indication: COLITIS
     Route: 041
     Dates: start: 20060324, end: 20060324
  2. CEFOTAXIME SODIUM [Concomitant]
     Indication: COLITIS
     Route: 065
     Dates: end: 20060323
  3. DILTIAZEM HYDROCHLORIDE [Concomitant]
     Indication: HYPERTENSION
     Route: 065

REACTIONS (2)
  - ANAPHYLACTIC SHOCK [None]
  - ANGINA UNSTABLE [None]
